FAERS Safety Report 22595885 (Version 1)
Quarter: 2023Q2

REPORT INFORMATION
  Report Type: Spontaneous
  Country: US (occurrence: US)
  Receive Date: 20230613
  Receipt Date: 20230613
  Transmission Date: 20230721
  Serious: No
  Sender: FDA-Public Use
  Company Number: US-CARA THERAPEUTICS, INC.-2023-00096-US

PATIENT
  Age: 88 Year
  Sex: Male
  Weight: 67.12 kg

DRUGS (17)
  1. KORSUVA [Suspect]
     Active Substance: DIFELIKEFALIN ACETATE
     Indication: Pruritus
     Dosage: 0.7 ML, 3 TIMES A WEEK
     Route: 042
     Dates: start: 20230307, end: 20230318
  2. BENADRYL [Suspect]
     Active Substance: DIPHENHYDRAMINE HYDROCHLORIDE
     Dosage: UNK
     Route: 050
     Dates: start: 20230309, end: 20230309
  3. GLIPIZIDE XL [Concomitant]
     Active Substance: GLIPIZIDE
     Indication: Type 2 diabetes mellitus
     Dosage: TAKE HALF EACH DAY FOR DIABETES TYPE 2
  4. ALOGLIPTIN [Concomitant]
     Active Substance: ALOGLIPTIN
     Indication: Type 2 diabetes mellitus
     Dosage: 6.25 MILLIGRAM, QD
  5. LEVOTHYROXINE [Concomitant]
     Active Substance: LEVOTHYROXINE
     Indication: Thyroid disorder
     Dosage: 75 MICROGRAM, QD
  6. SIMVASTATIN [Concomitant]
     Active Substance: SIMVASTATIN
     Indication: Blood cholesterol increased
     Dosage: 20 UNK, QD
  7. METOPROLOL SUCCINATE [Concomitant]
     Active Substance: METOPROLOL SUCCINATE
     Indication: Atrial fibrillation
     Dosage: 25MG ONCE A DAY, HALF A PILL A DAY
  8. SEVELAMER CARBONATE [Concomitant]
     Active Substance: SEVELAMER CARBONATE
     Indication: Chronic kidney disease
     Dosage: 800 UNK, TID, AFTER EACH MEAL
  9. SEVELAMER CARBONATE [Concomitant]
     Active Substance: SEVELAMER CARBONATE
     Indication: Dialysis
  10. PANTOPRAZOLE [Concomitant]
     Active Substance: PANTOPRAZOLE
     Indication: Gastrooesophageal reflux disease
     Dosage: 20 MILLIGRAM, TIW (MONDAY, WEDNESDAY, FRIDAY)
  11. GABAPENTIN [Concomitant]
     Active Substance: GABAPENTIN
     Indication: Pruritus
     Dosage: 100 MILLIGRAM, QHS
  12. GABAPENTIN [Concomitant]
     Active Substance: GABAPENTIN
     Indication: Insomnia
  13. SERTRALINE [Concomitant]
     Active Substance: SERTRALINE HYDROCHLORIDE
     Indication: Pruritus
     Dosage: 25 MILLIGRAM, QHS, TAKE WITH GABAPENTIN BEFORE I GO TO BED
  14. SERTRALINE [Concomitant]
     Active Substance: SERTRALINE HYDROCHLORIDE
     Indication: Insomnia
  15. VELTASSA [Concomitant]
     Active Substance: PATIROMER
     Indication: Chronic kidney disease
     Dosage: 8.4 MILLIGRAM, TIW POWDER MIX WITH WATER AND DRINK THREE TIMES A WEEK
  16. VELTASSA [Concomitant]
     Active Substance: PATIROMER
     Indication: Dialysis
  17. ASPIRIN [Concomitant]
     Active Substance: ASPIRIN
     Indication: Product used for unknown indication
     Dosage: 81 MILLIGRAM, QD

REACTIONS (10)
  - Sleep disorder [Recovering/Resolving]
  - Pruritus [Recovering/Resolving]
  - Pain [Recovering/Resolving]
  - Insomnia [Recovering/Resolving]
  - Skin haemorrhage [Recovering/Resolving]
  - Flushing [Recovering/Resolving]
  - Electric shock sensation [Recovering/Resolving]
  - Fatigue [Recovering/Resolving]
  - Dizziness [Recovering/Resolving]
  - Somnolence [Recovering/Resolving]

NARRATIVE: CASE EVENT DATE: 20230307
